FAERS Safety Report 24888875 (Version 2)
Quarter: 2025Q1

REPORT INFORMATION
  Report Type: Spontaneous
  Country: US (occurrence: US)
  Receive Date: 20250127
  Receipt Date: 20250213
  Transmission Date: 20250408
  Serious: Yes (Other)
  Sender: BAYER HEALTHCARE LLC
  Company Number: US-BAYER-2025A008919

PATIENT
  Age: 52 Year
  Sex: Female

DRUGS (1)
  1. BAYER LOW DOSE [Suspect]
     Active Substance: ASPIRIN
     Indication: Thrombosis prophylaxis
     Dosage: 2 DF, QD
     Route: 048
     Dates: start: 202410

REACTIONS (10)
  - Deep vein thrombosis [Unknown]
  - Lower limb fracture [None]
  - Feeling hot [Unknown]
  - Erythema [None]
  - Peripheral swelling [None]
  - Joint swelling [None]
  - Arthralgia [None]
  - Procedural site reaction [None]
  - Asthenia [None]
  - Dizziness [None]

NARRATIVE: CASE EVENT DATE: 20241001
